FAERS Safety Report 6747572-X (Version None)
Quarter: 2010Q2

REPORT INFORMATION
  Report Type: 
  Country: None (occurrence: None)
  Receive Date: 20100528
  Receipt Date: 20100520
  Transmission Date: 20101027
  Serious: Yes (Other)
  Sender: FDA-Public Use
  Company Number: US-ABBOTT-10P-163-0646307-00

PATIENT
  Sex: Female

DRUGS (9)
  1. AZMACORT [Suspect]
     Indication: BRONCHITIS CHRONIC
     Route: 055
     Dates: start: 19950101, end: 20100401
  2. AZMACORT [Suspect]
     Indication: WHEEZING
  3. BEXTRA [Suspect]
     Indication: DRUG USE FOR UNKNOWN INDICATION
  4. FLOVENT [Suspect]
     Indication: BRONCHITIS CHRONIC
     Route: 055
     Dates: start: 20100401
  5. FLOVENT [Suspect]
     Indication: WHEEZING
  6. LORTAB [Concomitant]
     Indication: PAIN
  7. LORTAB [Concomitant]
     Indication: FIBROMYALGIA
  8. CLONAZEPAM [Concomitant]
     Indication: RESTLESS LEGS SYNDROME
     Dosage: AT BEDTIME
  9. CLORAZEPATE DIPOTASSIUM [Concomitant]
     Indication: RESTLESS LEGS SYNDROME

REACTIONS (6)
  - BLADDER CANCER [None]
  - DEVICE BREAKAGE [None]
  - DYSPNOEA [None]
  - GLOSSODYNIA [None]
  - ORAL DISCOMFORT [None]
  - RASH [None]
